FAERS Safety Report 11830784 (Version 1)
Quarter: 2015Q4

REPORT INFORMATION
  Report Type: Report from Study
  Country: US (occurrence: US)
  Receive Date: 20151214
  Receipt Date: 20151214
  Transmission Date: 20160305
  Serious: No
  Sender: FDA-Public Use
  Company Number: US-AMGEN-USASL2015131480

PATIENT
  Age: 52 Year
  Sex: Female

DRUGS (1)
  1. ENBREL [Suspect]
     Active Substance: ETANERCEPT
     Indication: RHEUMATOID ARTHRITIS
     Dosage: 50 MG, QWK
     Route: 065
     Dates: start: 2015, end: 201511

REACTIONS (7)
  - Oropharyngeal pain [Unknown]
  - Sinus disorder [Unknown]
  - Rash papular [Recovering/Resolving]
  - Hypoaesthesia [Unknown]
  - Rash pruritic [Recovered/Resolved]
  - Dermatitis [Unknown]
  - Paraesthesia [Unknown]

NARRATIVE: CASE EVENT DATE: 201511
